FAERS Safety Report 4400615-0 (Version None)
Quarter: 2004Q3

REPORT INFORMATION
  Report Type: 
  Country: None (occurrence: None)
  Receive Date: 20040714
  Receipt Date: 20040628
  Transmission Date: 20050211
  Serious: Yes (Life-Threatening, Hospitalization)
  Sender: FDA-Public Use
  Company Number: F01200401558

PATIENT
  Age: 52 Year
  Sex: Male

DRUGS (10)
  1. OXALIPLATIN - SOLUTION- 130 MG/M2 [Suspect]
     Indication: COLORECTAL CANCER
     Dosage: 130 MG/M2 Q3W,
     Route: 042
     Dates: start: 20040611, end: 20040611
  2. CAPECITABINE-TABLET-850 MG/M2 [Suspect]
     Dosage: 850 MG/M2 TWICE DAILY FROM D1 TO D15, Q3W, ORAL
     Route: 048
     Dates: start: 20040611
  3. AVASTIN [Suspect]
     Dosage: 7.5 MG/KG OVER 30-90 MINUTES IV INFUSION ON DAY 1, Q3W;INTRAVENOUS NOS
     Route: 042
     Dates: start: 20040611, end: 20040611
  4. TYLENOL [Concomitant]
  5. KANKA [Concomitant]
  6. ATENOLOL [Concomitant]
  7. GAVISCON (ALGINATE SODIUM+BICARBONATE SODIUM +HYDROXIDE ALUMINIUM) [Concomitant]
  8. BENTYL [Concomitant]
  9. DULCOLAX [Concomitant]
  10. LORTAB (HYDROCODONE TARTRATE+PARACETAMOL) [Concomitant]

REACTIONS (15)
  - ATRIAL FIBRILLATION [None]
  - BLOOD PRESSURE DECREASED [None]
  - COLITIS [None]
  - COLONIC OBSTRUCTION [None]
  - DILATATION ATRIAL [None]
  - INTESTINAL ISCHAEMIA [None]
  - LARGE INTESTINE PERFORATION [None]
  - METASTASES TO LIVER [None]
  - PERITONITIS [None]
  - PLATELET COUNT INCREASED [None]
  - PULMONARY HYPERTENSION [None]
  - SEPSIS [None]
  - SINUS TACHYCARDIA [None]
  - TRICUSPID VALVE INCOMPETENCE [None]
  - VENTRICULAR HYPERTROPHY [None]
